FAERS Safety Report 22861942 (Version 4)
Quarter: 2023Q4

REPORT INFORMATION
  Report Type: Spontaneous
  Country: US (occurrence: US)
  Receive Date: 20230824
  Receipt Date: 20231212
  Transmission Date: 20240110
  Serious: No
  Sender: FDA-Public Use
  Company Number: US-PFIZER INC-PV202300143812

PATIENT
  Age: 82 Year
  Sex: Male
  Weight: 84.3 kg

DRUGS (2)
  1. TALZENNA [Suspect]
     Active Substance: TALAZOPARIB TOSYLATE
     Indication: Prostate cancer metastatic
     Dosage: 0.5 MG, DAILY (0 OF 1 CYCLE) ((100 % OF ORIGINAL DOSE 0.5)
     Route: 048
     Dates: start: 20230714, end: 20230813
  2. XTANDI [Suspect]
     Active Substance: ENZALUTAMIDE
     Indication: Prostate cancer metastatic
     Dosage: 160 MG, DAILY (0 OF 1 CYCLE)
     Route: 048

REACTIONS (2)
  - Neoplasm progression [Unknown]
  - Blood glucose increased [Unknown]
